FAERS Safety Report 5479398-1 (Version None)
Quarter: 2007Q4

REPORT INFORMATION
  Report Type: 
  Country: None (occurrence: None)
  Receive Date: 20071008
  Receipt Date: 20070926
  Transmission Date: 20080405
  Serious: Yes (Other)
  Sender: FDA-Public Use
  Company Number: US-AMGEN-STX245053

PATIENT
  Sex: Male

DRUGS (2)
  1. ENBREL [Suspect]
     Indication: RHEUMATOID ARTHRITIS
     Route: 058
     Dates: start: 20040912
  2. METHOTREXATE [Concomitant]
     Route: 065
     Dates: start: 20040101

REACTIONS (4)
  - EYE DISORDER [None]
  - MIGRAINE WITH AURA [None]
  - RETINAL TEAR [None]
  - TUNNEL VISION [None]
